FAERS Safety Report 20604459 (Version 4)
Quarter: 2022Q2

REPORT INFORMATION
  Report Type: Report from Study
  Country: ES (occurrence: None)
  Receive Date: 20220316
  Receipt Date: 20220513
  Transmission Date: 20220721
  Serious: Yes (Hospitalization)
  Sender: FDA-Public Use
  Company Number: ES-ROCHE-3043238

PATIENT
  Age: 81 Year
  Sex: Male
  Weight: 70 kg

DRUGS (12)
  1. ATEZOLIZUMAB [Suspect]
     Active Substance: ATEZOLIZUMAB
     Indication: Transitional cell carcinoma
     Dosage: 22/APR/2022, CYCLE BEFORE SAE ONSET
     Route: 041
     Dates: start: 20211203
  2. ATEZOLIZUMAB [Suspect]
     Active Substance: ATEZOLIZUMAB
     Dosage: CYCLE BEFORE SAE ONSET : 401
     Route: 041
     Dates: start: 20220211
  3. CISPLATIN [Suspect]
     Active Substance: CISPLATIN
     Indication: Transitional cell carcinoma
     Dosage: 01/APR/2022, CYCLE BEFORE SAE ONSET IS 50 MG
     Route: 065
     Dates: start: 20211203
  4. CISPLATIN [Suspect]
     Active Substance: CISPLATIN
     Dosage: CYCLE BEFORE SAE ONSET : 401
     Route: 065
     Dates: start: 20220211
  5. GEMCITABINE [Suspect]
     Active Substance: GEMCITABINE
     Indication: Transitional cell carcinoma
     Dosage: 01/APR/2022, CYCLE BEFORE SAE ONSET IS 1429 MG
     Route: 065
     Dates: start: 20211203
  6. GEMCITABINE [Suspect]
     Active Substance: GEMCITABINE
     Dosage: CYCLE BEFORE SAE ONSET : 401
     Route: 065
     Dates: start: 20220211
  7. FUROSEMIDE [Concomitant]
     Active Substance: FUROSEMIDE
     Indication: Hypertension
     Route: 048
  8. SIMVASTATIN [Concomitant]
     Active Substance: SIMVASTATIN
     Indication: Blood cholesterol increased
     Route: 048
  9. METFORMIN [Concomitant]
     Active Substance: METFORMIN HYDROCHLORIDE
     Indication: Diabetes mellitus
     Route: 048
  10. LINAGLIPTIN [Concomitant]
     Active Substance: LINAGLIPTIN
     Indication: Diabetes mellitus
     Route: 048
  11. LINAGLIPTIN [Concomitant]
     Active Substance: LINAGLIPTIN
     Route: 048
  12. OMEPRAZOLE [Concomitant]
     Active Substance: OMEPRAZOLE
     Indication: Gastrointestinal disorder prophylaxis
     Route: 048

REACTIONS (2)
  - Cardiac failure congestive [Recovered/Resolved]
  - Confusional state [Recovered/Resolved with Sequelae]

NARRATIVE: CASE EVENT DATE: 20220228
